FAERS Safety Report 12090083 (Version 1)
Quarter: 2016Q1

REPORT INFORMATION
  Report Type: Spontaneous
  Country: US (occurrence: US)
  Receive Date: 20160218
  Receipt Date: 20160218
  Transmission Date: 20160526
  Serious: Yes (Death)
  Sender: FDA-Public Use
  Company Number: US-ASTELLAS-2016US005683

PATIENT
  Age: 78 Year
  Sex: Male

DRUGS (1)
  1. XTANDI [Suspect]
     Active Substance: ENZALUTAMIDE
     Indication: PROSTATE CANCER
     Dosage: ORA160 MG, ONCE DAILY
     Route: 048
     Dates: start: 20150219, end: 20150917

REACTIONS (1)
  - Accident [Fatal]

NARRATIVE: CASE EVENT DATE: 20151212
